FAERS Safety Report 9348392 (Version 1)
Quarter: 2013Q2

REPORT INFORMATION
  Report Type: Spontaneous
  Country: SE (occurrence: SE)
  Receive Date: 20130614
  Receipt Date: 20130614
  Transmission Date: 20140414
  Serious: Yes (Hospitalization)
  Sender: FDA-Public Use
  Company Number: SE-BRISTOL-MYERS SQUIBB COMPANY-17467879

PATIENT
  Age: 64 Year
  Sex: Female

DRUGS (3)
  1. BARACLUDE TABS 0.5 MG [Suspect]
     Dosage: FILM COATED TABLET
     Route: 048
     Dates: start: 20130223
  2. ATENOLOL [Concomitant]
  3. CALOGEN [Concomitant]

REACTIONS (5)
  - Nausea [Recovering/Resolving]
  - Dizziness [Recovered/Resolved]
  - Headache [Not Recovered/Not Resolved]
  - Cold sweat [Recovered/Resolved]
  - Palpitations [Recovered/Resolved]
